FAERS Safety Report 25805886 (Version 2)
Quarter: 2025Q3

REPORT INFORMATION
  Report Type: Spontaneous
  Country: EU (occurrence: EU)
  Receive Date: 20250916
  Receipt Date: 20250919
  Transmission Date: 20251021
  Serious: Yes (Other)
  Sender: ROCHE
  Company Number: EU-ROCHE-10000385640

PATIENT
  Age: 48 Year
  Sex: Female

DRUGS (3)
  1. ALECENSA [Suspect]
     Active Substance: ALECTINIB HYDROCHLORIDE
     Indication: Non-small cell lung cancer metastatic
     Route: 065
     Dates: start: 201803
  2. CRIZOTINIB [Concomitant]
     Active Substance: CRIZOTINIB
  3. LORLATINIB [Concomitant]
     Active Substance: LORLATINIB
     Dates: start: 201907

REACTIONS (6)
  - Oedema peripheral [Unknown]
  - Leukoencephalopathy [Unknown]
  - Nausea [Unknown]
  - Constipation [Unknown]
  - Liver disorder [Unknown]
  - Metastases to central nervous system [Unknown]
